FAERS Safety Report 5165242-9 (Version None)
Quarter: 2006Q4

REPORT INFORMATION
  Report Type: 
  Country: None (occurrence: None)
  Receive Date: 20061124
  Receipt Date: 20061114
  Transmission Date: 20070319
  Serious: Yes (Hospitalization)
  Sender: FDA-Public Use
  Company Number: 2006142101

PATIENT
  Age: 58 Year
  Sex: Female
  Weight: 68 kg

DRUGS (3)
  1. LIPITOR [Suspect]
     Indication: HYPERCHOLESTEROLAEMIA
     Dosage: 10 MG (10  MG, 1 IN 1 D), ORAL
     Route: 048
     Dates: start: 20031201, end: 20060901
  2. PANTOZOL                   (PANTOPRAZOLE SODIUM) [Concomitant]
  3. OXAZEPAM [Concomitant]

REACTIONS (2)
  - CHEST PAIN [None]
  - PANCREATITIS [None]
